APPROVED DRUG PRODUCT: BREVIBLOC
Active Ingredient: ESMOLOL HYDROCHLORIDE
Strength: 10MG/ML
Dosage Form/Route: INJECTABLE;INJECTION
Application: N019386 | Product #006 | TE Code: AP
Applicant: BAXTER HEALTHCARE CORP
Approved: Feb 25, 2003 | RLD: Yes | RS: Yes | Type: RX